FAERS Safety Report 17483272 (Version 1)
Quarter: 2020Q1

REPORT INFORMATION
  Report Type: Report from Study
  Country: US (occurrence: US)
  Receive Date: 20200302
  Receipt Date: 20200302
  Transmission Date: 20200409
  Serious: Yes (Other)
  Sender: FDA-Public Use
  Company Number: US-PFIZER INC-2019348047

PATIENT
  Age: 58 Year
  Sex: Female

DRUGS (2)
  1. IBRANCE [Suspect]
     Active Substance: PALBOCICLIB
     Dosage: 100 MG, CYCLIC (ONCE A DAY, 21 DAYS ON AND 7 DAYS OFF)
     Route: 048
     Dates: start: 201909
  2. IBRANCE [Suspect]
     Active Substance: PALBOCICLIB
     Indication: BREAST CANCER FEMALE
     Dosage: 125 MG, CYCLIC (21 DAYS ON AND 7 DAYS OFF)
     Route: 048
     Dates: start: 20190720, end: 201909

REACTIONS (17)
  - Product dose omission [Unknown]
  - Oropharyngeal pain [Unknown]
  - Lacrimation increased [Unknown]
  - Urinary tract infection [Unknown]
  - Dizziness [Recovering/Resolving]
  - Pain in extremity [Unknown]
  - Abdominal pain [Recovering/Resolving]
  - Hot flush [Recovering/Resolving]
  - Cough [Unknown]
  - Night sweats [Recovering/Resolving]
  - Neuropathy peripheral [Unknown]
  - Hypoaesthesia [Unknown]
  - White blood cell count decreased [Recovering/Resolving]
  - Taste disorder [Unknown]
  - Nasal congestion [Unknown]
  - Fatigue [Recovered/Resolved]
  - Balance disorder [Unknown]

NARRATIVE: CASE EVENT DATE: 2019
